FAERS Safety Report 17535107 (Version 4)
Quarter: 2020Q2

REPORT INFORMATION
  Report Type: Report from Study
  Country: US (occurrence: US)
  Receive Date: 20200312
  Receipt Date: 20200617
  Transmission Date: 20200713
  Serious: No
  Sender: FDA-Public Use
  Company Number: NVSC2020US070756

PATIENT
  Sex: Female

DRUGS (1)
  1. COSENTYX [Suspect]
     Active Substance: SECUKINUMAB
     Indication: ANKYLOSING SPONDYLITIS
     Dosage: UNK UNK, UNKNOWN
     Route: 065

REACTIONS (2)
  - Fatigue [Recovering/Resolving]
  - Gastroenteritis viral [Recovered/Resolved]
